FAERS Safety Report 8852124 (Version 1)
Quarter: 2012Q4

REPORT INFORMATION
  Report Type: 
  Country: FR (occurrence: FR)
  Receive Date: 20121022
  Receipt Date: 20121022
  Transmission Date: 20130627
  Serious: Yes (Hospitalization)
  Sender: FDA-Public Use
  Company Number: FR-PFIZER INC-2012258697

PATIENT
  Age: 57 Year
  Sex: Male

DRUGS (17)
  1. LYRICA [Suspect]
     Dosage: 75 mg, 3x/day
     Route: 048
     Dates: start: 20120908, end: 20120911
  2. VANCOMYCIN [Suspect]
     Dosage: 1.5 g, 1x/day
     Route: 042
     Dates: start: 20120820, end: 20120914
  3. CIPROFLOXACIN [Suspect]
     Dosage: 750 mg, 2x/day
     Route: 048
     Dates: start: 20120902, end: 20120914
  4. INEXIUM [Suspect]
     Dosage: 20 mg, 1x/day
     Route: 048
     Dates: start: 20120814, end: 20120911
  5. GENTAMICIN ^PANPHARMA^ [Suspect]
     Dosage: UNK
     Route: 042
     Dates: start: 20120817, end: 20120831
  6. ACUPAN [Suspect]
     Dosage: UNK
     Dates: start: 20120907, end: 20120910
  7. KETAMINE [Suspect]
     Dosage: UNK
     Route: 042
     Dates: start: 20120907, end: 20120910
  8. BURINEX [Suspect]
     Dosage: UNK
     Dates: start: 20120828, end: 20120831
  9. COUMADINE [Concomitant]
     Dosage: UNK
  10. ACTISKENAN [Concomitant]
     Dosage: UNK
     Dates: start: 20120831
  11. LOVENOX [Concomitant]
     Dosage: UNK
     Dates: start: 20120814
  12. DAFALGAN [Concomitant]
     Dosage: UNK
     Dates: start: 20120814
  13. IMOVANE [Concomitant]
     Dosage: UNK
     Dates: start: 20120814
  14. TOPALGIC [Concomitant]
     Dosage: UNK
     Dates: start: 20120904
  15. SKENAN [Concomitant]
     Dosage: UNK
     Dates: start: 20120910
  16. LASILIX [Concomitant]
     Dosage: UNK
     Dates: start: 20120814, end: 20120827
  17. COLCHIMAX [Concomitant]
     Dosage: UNK
     Dates: start: 20120815, end: 20120828

REACTIONS (1)
  - Agranulocytosis [Recovered/Resolved with Sequelae]
